FAERS Safety Report 14125184 (Version 2)
Quarter: 2017Q4

REPORT INFORMATION
  Report Type: Spontaneous
  Country: US (occurrence: US)
  Receive Date: 20171025
  Receipt Date: 20171025
  Transmission Date: 20180321
  Serious: Yes (Hospitalization)
  Sender: FDA-Public Use
  Company Number: US-SA-2017SA205301

PATIENT
  Age: 22 Year
  Sex: Female

DRUGS (4)
  1. ALCOHOL. [Suspect]
     Active Substance: ALCOHOL
     Route: 048
  2. DOXYLAMINE SUCCINATE. [Suspect]
     Active Substance: DOXYLAMINE SUCCINATE
     Dosage: MASSIVE OVERDOSE
     Route: 048
  3. ACETAMINOPHEN. [Suspect]
     Active Substance: ACETAMINOPHEN
     Route: 048
  4. DIPHENHYDRAMINE. [Suspect]
     Active Substance: DIPHENHYDRAMINE
     Dosage: MASSIVE OVERDOSE
     Route: 048

REACTIONS (13)
  - Hyperpyrexia [Recovering/Resolving]
  - Hyperreflexia [Recovering/Resolving]
  - Somnolence [Recovering/Resolving]
  - Hypertonia [Recovering/Resolving]
  - Serotonin syndrome [Recovering/Resolving]
  - Clonus [Recovering/Resolving]
  - Intentional overdose [Unknown]
  - Dehydration [Recovering/Resolving]
  - Tachycardia [Recovering/Resolving]
  - Aspartate aminotransferase increased [Unknown]
  - Mydriasis [Recovering/Resolving]
  - Unresponsive to stimuli [Recovering/Resolving]
  - Dry skin [Recovering/Resolving]
